FAERS Safety Report 8979257 (Version 2)
Quarter: 2013Q1

REPORT INFORMATION
  Report Type: Spontaneous
  Country: IT (occurrence: IT)
  Receive Date: 20121221
  Receipt Date: 20130306
  Transmission Date: 20140127
  Serious: Yes (Hospitalization, Other)
  Sender: FDA-Public Use
  Company Number: IT-NOVOPROD-366780

PATIENT
  Age: 48 Year
  Sex: Female

DRUGS (4)
  1. NOVORAPID FLEXPEN [Suspect]
     Indication: DIABETES MELLITUS
     Dosage: 32 U, QD
     Route: 058
     Dates: start: 20110101
  2. LANTUS [Suspect]
     Indication: DIABETES MELLITUS
     Dosage: 50 U, QD
  3. SIMVASTATINA [Concomitant]
     Dosage: 20 MG, QD
  4. ASPIRINA [Concomitant]
     Dosage: 1 POSOLOGICAL UNIT

REACTIONS (3)
  - Loss of consciousness [Recovered/Resolved]
  - Hypoglycaemia [Recovered/Resolved]
  - Head injury [Recovered/Resolved]
